FAERS Safety Report 5852845-9 (Version None)
Quarter: 2008Q3

REPORT INFORMATION
  Report Type: 
  Country: None (occurrence: None)
  Receive Date: 20080814
  Receipt Date: 20080425
  Transmission Date: 20090109
  Serious: Yes (Hospitalization)
  Sender: FDA-Public Use
  Company Number: LUP-0273

PATIENT
  Age: 65 Year
  Sex: Male
  Weight: 87.0906 kg

DRUGS (2)
  1. MELOXICAM [Suspect]
     Indication: PROCEDURAL PAIN
     Dosage: 15 MG QD PO
     Route: 048
     Dates: start: 20080321, end: 20080404
  2. LIPITOR [Concomitant]

REACTIONS (1)
  - GASTRIC ULCER HAEMORRHAGE [None]
